FAERS Safety Report 6179354-4 (Version None)
Quarter: 2009Q2

REPORT INFORMATION
  Report Type: 
  Country: None (occurrence: None)
  Receive Date: 20090501
  Receipt Date: 20090501
  Transmission Date: 20091009
  Serious: Yes (Death)
  Sender: FDA-Public Use
  Company Number: None

PATIENT
  Age: 50 Year
  Sex: Female
  Weight: 64.8644 kg

DRUGS (1)
  1. SUFAMETHOXAZOLE - TMP DS [Suspect]
     Dosage: 1 TAB 2 X DAILY ON MON AND THURS

REACTIONS (2)
  - HAEMORRHAGE [None]
  - TOXIC EPIDERMAL NECROLYSIS [None]
